FAERS Safety Report 15837967 (Version 1)
Quarter: 2019Q1

REPORT INFORMATION
  Report Type: Spontaneous
  Country: RO (occurrence: RO)
  Receive Date: 20190117
  Receipt Date: 20190117
  Transmission Date: 20190417
  Serious: Yes (Death, Life-Threatening, Hospitalization)
  Sender: FDA-Public Use
  Company Number: RO-ABBVIE-19K-135-2626219-00

PATIENT
  Sex: Male
  Weight: 69 kg

DRUGS (6)
  1. PLAVIX [Concomitant]
     Active Substance: CLOPIDOGREL BISULFATE
     Indication: CEREBROVASCULAR ACCIDENT
     Route: 048
  2. MILURIT [Concomitant]
     Active Substance: ALLOPURINOL
     Indication: LITHIASIS
     Route: 048
  3. SINTROM [Concomitant]
     Active Substance: ACENOCOUMAROL
     Indication: CEREBROVASCULAR ACCIDENT
     Route: 048
  4. CRESTOR [Concomitant]
     Active Substance: ROSUVASTATIN CALCIUM
     Indication: DYSLIPIDAEMIA
  5. BETALOC ZOK [Concomitant]
     Active Substance: METOPROLOL SUCCINATE
     Indication: ISCHAEMIC CARDIOMYOPATHY
  6. HUMIRA [Suspect]
     Active Substance: ADALIMUMAB
     Indication: CROHN^S DISEASE
     Dosage: ATTACK DOSE - 2 AMPOULES
     Route: 058
     Dates: start: 20180727, end: 20181019

REACTIONS (6)
  - Pneumonia [Fatal]
  - General physical health deterioration [Unknown]
  - Toxic shock syndrome [Fatal]
  - Sepsis [Fatal]
  - Blood pressure decreased [Unknown]
  - Acute respiratory failure [Fatal]
